FAERS Safety Report 6426061-6 (Version None)
Quarter: 2009Q4

REPORT INFORMATION
  Report Type: 
  Country: None (occurrence: None)
  Receive Date: 20091104
  Receipt Date: 20091027
  Transmission Date: 20100525
  Serious: Yes (Hospitalization)
  Sender: FDA-Public Use
  Company Number: US-BIOGENIDEC-2009BI027587

PATIENT
  Age: 67 Year
  Sex: Female

DRUGS (2)
  1. AVONEX [Suspect]
     Indication: MULTIPLE SCLEROSIS
     Route: 030
     Dates: start: 19970401, end: 19991227
  2. AVONEX [Suspect]
     Route: 030
     Dates: start: 20050706

REACTIONS (5)
  - BALANCE DISORDER [None]
  - FALL [None]
  - HEAD INJURY [None]
  - MOBILITY DECREASED [None]
  - SKULL FRACTURE [None]
